FAERS Safety Report 22297129 (Version 1)
Quarter: 2023Q2

REPORT INFORMATION
  Report Type: Other
  Country: AE (occurrence: None)
  Receive Date: 20230509
  Receipt Date: 20230509
  Transmission Date: 20230721
  Serious: Yes (Hospitalization)
  Sender: FDA-Public Use
  Company Number: AE-ROCHE-3345992

PATIENT
  Age: 70 Year
  Sex: Male

DRUGS (1)
  1. AVASTIN [Suspect]
     Active Substance: BEVACIZUMAB
     Indication: Glioblastoma
     Dosage: FREQUENCY 12 INTERVAL 2 WEEKS
     Route: 042
     Dates: start: 20221222

REACTIONS (1)
  - Seizure [Unknown]

NARRATIVE: CASE EVENT DATE: 20230503
